FAERS Safety Report 9682140 (Version 2)
Quarter: 2013Q4

REPORT INFORMATION
  Report Type: Report from Study
  Country: AU (occurrence: AU)
  Receive Date: 20131111
  Receipt Date: 20131122
  Transmission Date: 20140711
  Serious: Yes (Hospitalization)
  Sender: FDA-Public Use
  Company Number: AU-ROCHE-1296881

PATIENT
  Age: 66 Year
  Sex: Male
  Weight: 58 kg

DRUGS (8)
  1. BEVACIZUMAB [Suspect]
     Indication: COLON CANCER
     Dosage: DATE OF LAST DOSE PRIOR TO SAE: 27/SEP/2013
     Route: 042
     Dates: start: 20130625
  2. CAPECITABINE [Suspect]
     Indication: COLON CANCER
     Dosage: DATE OF LAST DOSE PRIOR TOSAE: 30/SEP/2013
     Route: 048
     Dates: start: 20130625, end: 20130930
  3. OXALIPLATIN [Suspect]
     Indication: COLON CANCER
     Dosage: DATE OF LAST DOSE PRIOR TO SAE: 27/SEP/2013
     Route: 042
     Dates: start: 20130625
  4. FOLINIC ACID [Suspect]
     Indication: COLON CANCER
     Route: 065
  5. FLUOROURACIL [Suspect]
     Indication: COLON CANCER
     Route: 065
  6. METOCLOPRAMIDE [Concomitant]
     Route: 065
     Dates: start: 20130927
  7. LOPERAMIDE [Concomitant]
     Route: 065
     Dates: start: 20130927
  8. DEXAMETHASONE [Concomitant]
     Route: 065
     Dates: start: 20130927, end: 20130929

REACTIONS (2)
  - Pyrexia [Not Recovered/Not Resolved]
  - Visual impairment [Recovered/Resolved]
